FAERS Safety Report 6456185-9 (Version None)
Quarter: 2009Q4

REPORT INFORMATION
  Report Type: 
  Country: None (occurrence: None)
  Receive Date: 20091125
  Receipt Date: 20091117
  Transmission Date: 20100525
  Serious: Yes (Other)
  Sender: FDA-Public Use
  Company Number: JP-PFIZER INC-2009300485

PATIENT
  Age: 73 Year
  Sex: Female

DRUGS (1)
  1. NORVASC [Suspect]

REACTIONS (1)
  - PARKINSON'S DISEASE [None]
